FAERS Safety Report 6553810-9 (Version None)
Quarter: 2010Q1

REPORT INFORMATION
  Report Type: 
  Country: None (occurrence: None)
  Receive Date: 20100125
  Receipt Date: 20100125
  Transmission Date: 20100710
  Serious: Yes (Disabling)
  Sender: FDA-Public Use
  Company Number: None

PATIENT
  Age: 66 Year
  Sex: Female
  Weight: 86.1834 kg

DRUGS (9)
  1. LIDOCAINE [Suspect]
     Indication: NEPHROLITHIASIS
     Dosage: IV 1 X FOR SURGERY
     Route: 042
  2. DIPRIVAN [Suspect]
     Indication: NEPHROLITHIASIS
     Dosage: IV 1 X FOR SURGERY
     Route: 042
  3. PEPSID [Concomitant]
  4. MIDAZOLAM HCL [Concomitant]
  5. DEXAMETHASONE [Concomitant]
  6. DILAUDID [Concomitant]
  7. FENTANYL CITRATE [Concomitant]
  8. ONDANSETRON [Concomitant]
  9. KEFLEX [Concomitant]

REACTIONS (6)
  - DISORIENTATION [None]
  - FEELING ABNORMAL [None]
  - HEADACHE [None]
  - HYPERACUSIS [None]
  - TINNITUS [None]
  - VERTIGO [None]
